FAERS Safety Report 7418277-7 (Version None)
Quarter: 2011Q2

REPORT INFORMATION
  Report Type: 
  Country: None (occurrence: None)
  Receive Date: 20110415
  Receipt Date: 20110318
  Transmission Date: 20111010
  Serious: No
  Sender: FDA-Public Use
  Company Number: US-B.I. PHARMACEUTICALS,INC./RIDGEFIELD-2011-BP-08716BP

PATIENT
  Sex: Female

DRUGS (2)
  1. PRADAXA [Suspect]
     Indication: ATRIAL FIBRILLATION
     Dosage: 300 MG
     Route: 048
     Dates: start: 20110317
  2. TRAMADOL [Concomitant]
     Indication: HEADACHE
     Dates: start: 20110201

REACTIONS (3)
  - DIARRHOEA [None]
  - DYSPNOEA [None]
  - DIZZINESS [None]
